FAERS Safety Report 18143035 (Version 4)
Quarter: 2020Q3

REPORT INFORMATION
  Report Type: Report from Study
  Country: FR (occurrence: FR)
  Receive Date: 20200813
  Receipt Date: 20200929
  Transmission Date: 20201103
  Serious: Yes (Life-Threatening, Hospitalization, Other)
  Sender: FDA-Public Use
  Company Number: FR-AMGEN-FRACT2020129009

PATIENT
  Age: 60 Year
  Sex: Female

DRUGS (10)
  1. ELOXATIN [Suspect]
     Active Substance: OXALIPLATIN
     Dosage: UNK
     Route: 042
     Dates: start: 20200831
  2. ELVORINE [Suspect]
     Active Substance: LEUCOVORIN CALCIUM
     Dosage: UNK
     Route: 042
     Dates: start: 20200831
  3. ELVORINE [Suspect]
     Active Substance: LEUCOVORIN CALCIUM
     Indication: COLORECTAL CANCER METASTATIC
     Dosage: 330 MILLIGRAM, EVERY CYCLE
     Route: 042
     Dates: start: 20200608, end: 20200720
  4. 5 FU [Suspect]
     Active Substance: FLUOROURACIL
     Dosage: UNK
     Route: 042
     Dates: start: 20200831
  5. 5 FU [Suspect]
     Active Substance: FLUOROURACIL
     Dosage: UNK
     Route: 040
     Dates: start: 20200831
  6. PANITUMUMAB [Suspect]
     Active Substance: PANITUMUMAB
     Dosage: UNK
     Route: 042
     Dates: start: 20200831
  7. ELOXATIN [Suspect]
     Active Substance: OXALIPLATIN
     Indication: COLORECTAL CANCER METASTATIC
     Dosage: 140 MILLIGRAM, EVERY CYCLE
     Route: 042
     Dates: start: 20200608, end: 20200720
  8. PANITUMUMAB [Suspect]
     Active Substance: PANITUMUMAB
     Indication: COLORECTAL CANCER METASTATIC
     Dosage: 350 MILLIGRAM, EVERY CYCLE
     Route: 042
     Dates: start: 20200608, end: 20200720
  9. 5 FU [Suspect]
     Active Substance: FLUOROURACIL
     Indication: COLORECTAL CANCER METASTATIC
     Dosage: 4000 MILLIGRAM, EVERY CYCLE
     Route: 042
     Dates: start: 20200608, end: 20200720
  10. 5 FU [Suspect]
     Active Substance: FLUOROURACIL
     Dosage: 660 MILLIGRAM, EVERY CYCLE
     Route: 040
     Dates: start: 20200608, end: 20200720

REACTIONS (1)
  - Septic shock [Recovered/Resolved]

NARRATIVE: CASE EVENT DATE: 20200729
